FAERS Safety Report 24169273 (Version 1)
Quarter: 2024Q3

REPORT INFORMATION
  Report Type: Spontaneous
  Country: CO (occurrence: CO)
  Receive Date: 20240802
  Receipt Date: 20240802
  Transmission Date: 20241016
  Serious: Yes (Hospitalization)
  Sender: BOEHRINGER INGELHEIM
  Company Number: CO-BoehringerIngelheim-2024-BI-043519

PATIENT
  Sex: Female
  Weight: 62 kg

DRUGS (1)
  1. OFEV [Suspect]
     Active Substance: NINTEDANIB
     Indication: Pulmonary fibrosis
     Route: 048

REACTIONS (3)
  - Intestinal obstruction [Recovered/Resolved]
  - Gastric dilatation [Recovered/Resolved]
  - Lithiasis [Recovered/Resolved]
